FAERS Safety Report 10191788 (Version 1)
Quarter: 2014Q2

REPORT INFORMATION
  Report Type: Spontaneous
  Country: US (occurrence: US)
  Receive Date: 20140523
  Receipt Date: 20140523
  Transmission Date: 20141212
  Serious: No
  Sender: FDA-Public Use
  Company Number: US-BAYER-2014-076638

PATIENT
  Age: 74 Year
  Sex: Female
  Weight: 58.96 kg

DRUGS (2)
  1. ALEVE CAPLET [Suspect]
     Indication: INFLAMMATION
     Dosage: 2 DF, BID
     Route: 048
  2. ALEVE CAPLET [Suspect]
     Indication: PAIN

REACTIONS (2)
  - Drug prescribing error [None]
  - Off label use [None]
